FAERS Safety Report 7405205-3 (Version None)
Quarter: 2011Q2

REPORT INFORMATION
  Report Type: 
  Country: None (occurrence: None)
  Receive Date: 20110411
  Receipt Date: 20110331
  Transmission Date: 20111010
  Serious: Yes (Other)
  Sender: FDA-Public Use
  Company Number: US-US-EMD SERONO, INC.-7000588

PATIENT
  Sex: Female

DRUGS (4)
  1. REBIF [Suspect]
     Indication: MULTIPLE SCLEROSIS
     Route: 058
     Dates: start: 20090409, end: 20090701
  2. ZYRTEC [Concomitant]
     Indication: SEASONAL ALLERGY
  3. WELLBUTRIN [Concomitant]
     Indication: DEPRESSION
  4. PREVACID [Concomitant]
     Indication: IRRITABLE BOWEL SYNDROME

REACTIONS (1)
  - PANCYTOPENIA [None]
